FAERS Safety Report 23932002 (Version 1)
Quarter: 2024Q2

REPORT INFORMATION
  Report Type: Report from Study
  Country: CN (occurrence: CN)
  Receive Date: 20240603
  Receipt Date: 20240603
  Transmission Date: 20240717
  Serious: Yes (Other)
  Sender: FDA-Public Use
  Company Number: CN-LAT-245644288306Em

PATIENT

DRUGS (1)
  1. REMICADE [Suspect]
     Active Substance: INFLIXIMAB
     Indication: Behcet^s syndrome
     Dosage: EVERY 8 WEEKS FOLLOWING LOADING DOSES AT WEEKS 0, 2, AND 6
     Route: 041

REACTIONS (7)
  - Pneumonia [Unknown]
  - Cardiac failure [Unknown]
  - Tuberculosis [Unknown]
  - Hypersensitivity [Unknown]
  - Varicella zoster virus infection [Unknown]
  - Behaviour disorder [Unknown]
  - Off label use [Unknown]
